FAERS Safety Report 5399785-X (Version None)
Quarter: 2007Q3

REPORT INFORMATION
  Report Type: 
  Country: None (occurrence: None)
  Receive Date: 20070730
  Receipt Date: 20070717
  Transmission Date: 20080115
  Serious: Yes (Hospitalization)
  Sender: FDA-Public Use
  Company Number: DE-JNJFOC-20070303900

PATIENT
  Age: 50 Year
  Sex: Male

DRUGS (14)
  1. REMICADE [Suspect]
     Dosage: 250MG/750MG
     Route: 042
  2. REMICADE [Suspect]
     Dosage: 250MG/750MG
     Route: 042
  3. REMICADE [Suspect]
     Dosage: 250MG/680MG
     Route: 042
  4. REMICADE [Suspect]
     Dosage: 230MG/2930MG
     Route: 042
  5. REMICADE [Suspect]
     Dosage: 250MG/1150MG
     Route: 042
  6. REMICADE [Suspect]
     Dosage: 300MG/600MG
     Route: 042
  7. REMICADE [Suspect]
     Dosage: 300MG/1100MG
     Route: 042
  8. REMICADE [Suspect]
     Indication: RHEUMATOID ARTHRITIS
     Route: 042
  9. MTX [Concomitant]
  10. MTX [Concomitant]
  11. PREDNISOLONE [Concomitant]
  12. DICLOFENAC SODIUM [Concomitant]
  13. FOLIC ACID [Concomitant]
  14. OMEPRAZOLE [Concomitant]

REACTIONS (2)
  - CORONARY ARTERY DISEASE [None]
  - MYOCARDIAL INFARCTION [None]
